FAERS Safety Report 4436851-7 (Version None)
Quarter: 2004Q3

REPORT INFORMATION
  Report Type: 
  Country: None (occurrence: None)
  Receive Date: 20040827
  Receipt Date: 20040820
  Transmission Date: 20050211
  Serious: Yes (Other)
  Sender: FDA-Public Use
  Company Number: 04-00491

PATIENT
  Age: 12 Year
  Sex: Female

DRUGS (2)
  1. PHENOBARBITAL ELIXIR, USP (ALPHARMA) [Suspect]
  2. PHENOBARBITAL TABLETS (PUREPAC) [Suspect]

REACTIONS (2)
  - NEUTROPENIA [None]
  - VITAMIN B12 INCREASED [None]
